FAERS Safety Report 6142353-2 (Version None)
Quarter: 2009Q2

REPORT INFORMATION
  Report Type: 
  Country: None (occurrence: None)
  Receive Date: 20090403
  Receipt Date: 20090325
  Transmission Date: 20091009
  Serious: Yes (Hospitalization)
  Sender: FDA-Public Use
  Company Number: US-JNJFOC-20090306611

PATIENT
  Sex: Female

DRUGS (8)
  1. FENTANYL TRANSDERMAL SYSTEM [Suspect]
     Indication: COMPLEX REGIONAL PAIN SYNDROME
     Dosage: 75.0 UG/HR 2 EVERY 72 HOURS
     Route: 062
  2. XANAX [Concomitant]
     Indication: ANXIETY
     Dosage: AS NEEDED
     Route: 048
  3. SOMA [Concomitant]
     Indication: MUSCLE SPASMS
     Route: 048
  4. TEMAZEPAM [Concomitant]
     Indication: INSOMNIA
     Dosage: 1-2 AS NEEDED
     Route: 048
  5. KEPPRA [Concomitant]
     Indication: CONVULSION
     Route: 048
  6. LAMICTAL [Concomitant]
     Indication: CONVULSION
     Dosage: 1 IN AM- 2 IN PM
     Route: 048
  7. PERCOCET [Concomitant]
     Indication: BREAKTHROUGH PAIN
     Dosage: AS NEEDED
     Route: 048
  8. OXYCODONE HCL [Concomitant]
     Indication: PAIN
     Route: 048

REACTIONS (5)
  - HYPERHIDROSIS [None]
  - INADEQUATE ANALGESIA [None]
  - TREATMENT NONCOMPLIANCE [None]
  - WITHDRAWAL SYNDROME [None]
  - WRONG TECHNIQUE IN DRUG USAGE PROCESS [None]
